FAERS Safety Report 6389308-0 (Version None)
Quarter: 2009Q4

REPORT INFORMATION
  Report Type: 
  Country: None (occurrence: None)
  Receive Date: 20091006
  Receipt Date: 20090930
  Transmission Date: 20100525
  Serious: Yes (Death, Hospitalization, Other)
  Sender: FDA-Public Use
  Company Number: PHHY2009JP39520

PATIENT
  Age: 68 Year
  Sex: Female
  Weight: 39.8 kg

DRUGS (5)
  1. CYCLOSPORINE [Suspect]
     Indication: DIFFUSE ALVEOLAR DAMAGE
     Dosage: UNK
     Route: 048
  2. PREDNISOLONE [Suspect]
     Indication: DIFFUSE ALVEOLAR DAMAGE
     Dosage: 20 MG, UNK
  3. METHYLPREDNISOLONE [Concomitant]
  4. TACROLIMUS [Concomitant]
  5. POLYGAM S/D [Concomitant]
     Indication: DIFFUSE ALVEOLAR DAMAGE
     Dosage: UNK

REACTIONS (16)
  - ARTERIOSCLEROSIS [None]
  - CARDIAC HYPERTROPHY [None]
  - CONCOMITANT DISEASE AGGRAVATED [None]
  - CONJUNCTIVAL HYPERAEMIA [None]
  - CONJUNCTIVAL OEDEMA [None]
  - DERMATOMYOSITIS [None]
  - DIFFUSE ALVEOLAR DAMAGE [None]
  - DISSEMINATED INTRAVASCULAR COAGULATION [None]
  - DYSPNOEA [None]
  - ENDOTRACHEAL INTUBATION [None]
  - ERYTHEMA [None]
  - GASTROINTESTINAL HAEMORRHAGE [None]
  - HAEMORRHAGE [None]
  - ORGANISING PNEUMONIA [None]
  - RESPIRATORY DISTRESS [None]
  - RESPIRATORY FAILURE [None]
